FAERS Safety Report 17990516 (Version 1)
Quarter: 2020Q3

REPORT INFORMATION
  Report Type: Spontaneous
  Country: BE (occurrence: BE)
  Receive Date: 20200707
  Receipt Date: 20200707
  Transmission Date: 20201103
  Serious: Yes (Hospitalization, Other)
  Sender: FDA-Public Use
  Company Number: BE-OTSUKA-2020_016148

PATIENT
  Age: 40 Year
  Sex: Male
  Weight: 150 kg

DRUGS (1)
  1. ABILIFY MAINTENA [Suspect]
     Active Substance: ARIPIPRAZOLE
     Indication: PSYCHOTIC DISORDER
     Dosage: 400 MG, UNK
     Route: 065
     Dates: start: 201901

REACTIONS (8)
  - Pneumonia [Unknown]
  - Neuroleptic malignant syndrome [Unknown]
  - Catatonia [Unknown]
  - Pulmonary embolism [Unknown]
  - Respiratory distress [Unknown]
  - Inappropriate schedule of product administration [Unknown]
  - Movement disorder [Unknown]
  - Product use in unapproved indication [Unknown]

NARRATIVE: CASE EVENT DATE: 201901
